FAERS Safety Report 22641119 (Version 1)
Quarter: 2023Q2

REPORT INFORMATION
  Report Type: Spontaneous
  Country: GB (occurrence: GB)
  Receive Date: 20230626
  Receipt Date: 20230626
  Transmission Date: 20230722
  Serious: Yes (Disabling)
  Sender: FDA-Public Use
  Company Number: None

PATIENT
  Age: 61 Year
  Sex: Female
  Weight: 66 kg

DRUGS (12)
  1. DOXAZOSIN [Suspect]
     Active Substance: DOXAZOSIN MESYLATE
     Indication: Ill-defined disorder
     Dosage: UNK
     Route: 065
     Dates: start: 20230619
  2. ASPIRIN [Concomitant]
     Active Substance: ASPIRIN
     Indication: Ill-defined disorder
     Dosage: 1 DOSAGE FORM, QD(TAKE ONE DAILY)
     Route: 065
     Dates: start: 20220513
  3. CANDESARTAN [Concomitant]
     Active Substance: CANDESARTAN
     Indication: Ill-defined disorder
     Dosage: 1 DOSAGE FORM, QD(TAKE ONE DAILY)
     Route: 065
     Dates: start: 20220513
  4. DOXAZOSIN [Concomitant]
     Active Substance: DOXAZOSIN MESYLATE
     Indication: Ill-defined disorder
     Dosage: 1 DOSAGE FORM, QD)TAKE ONE DAILY)
     Route: 065
     Dates: start: 20230530
  5. NITROGLYCERIN [Concomitant]
     Active Substance: NITROGLYCERIN
     Indication: Ill-defined disorder
     Dosage: SPRAY 1-2 DOSES UNDER THE TONGUE WHEN REQUIRED
     Route: 065
     Dates: start: 20220513
  6. INDAPAMIDE [Concomitant]
     Active Substance: INDAPAMIDE
     Indication: Ill-defined disorder
     Dosage: TAKE 1 TABLET IN THE MORNING TO LOWER BLOOD PRE
     Route: 065
     Dates: start: 20230411, end: 20230509
  7. INDAPAMIDE [Concomitant]
     Active Substance: INDAPAMIDE
     Indication: Blood pressure increased
  8. LERCANIDIPINE HYDROCHLORIDE [Concomitant]
     Active Substance: LERCANIDIPINE HYDROCHLORIDE
     Indication: Ill-defined disorder
     Dosage: 1 DOSAGE FORM, QD(ONE TO BE TAKEN ONCE DAILY )
     Route: 065
     Dates: start: 20230320
  9. LOPERAMIDE [Concomitant]
     Active Substance: LOPERAMIDE
     Indication: Ill-defined disorder
     Dosage: TO BE TAKEN THREE TIMES DAILY FOR BOWELS
     Route: 065
     Dates: start: 20220513
  10. LOPERAMIDE [Concomitant]
     Active Substance: LOPERAMIDE
     Indication: Abdominal discomfort
  11. MEBEVERINE HYDROCHLORIDE [Concomitant]
     Active Substance: MEBEVERINE HYDROCHLORIDE
     Indication: Ill-defined disorder
     Dosage: 1 DOSAGE FORM, TID(TAKE ONE TABLET THREE TIMES A DAY 20 MIN BEFORE)
     Route: 065
     Dates: start: 20220822
  12. OMEPRAZOLE [Concomitant]
     Active Substance: OMEPRAZOLE
     Indication: Ill-defined disorder
     Dosage: 80 MILLIGRAM, QD (AKE TWO CAPSULES (40MG) ONCE DAILY)
     Route: 065
     Dates: start: 20220513

REACTIONS (1)
  - Reaction to excipient [Recovered/Resolved]

NARRATIVE: CASE EVENT DATE: 20230619
